FAERS Safety Report 4417525-5 (Version None)
Quarter: 2004Q3

REPORT INFORMATION
  Report Type: 
  Country: None (occurrence: None)
  Receive Date: 20040804
  Receipt Date: 20040730
  Transmission Date: 20050211
  Serious: Yes (Other)
  Sender: FDA-Public Use
  Company Number: 002262

PATIENT
  Sex: Female

DRUGS (3)
  1. MEDROXYPROGESTERONE ACETATE [Suspect]
     Dates: start: 20000301, end: 20010201
  2. PREMARIN [Suspect]
     Dates: start: 20000301, end: 20010201
  3. MEDROXYPROGESTERONE ACETATE [Suspect]
     Dates: start: 20010201, end: 20021101

REACTIONS (1)
  - OVARIAN CANCER [None]
